FAERS Safety Report 17408914 (Version 1)
Quarter: 2020Q1

REPORT INFORMATION
  Report Type: Spontaneous
  Country: JP (occurrence: JP)
  Receive Date: 20200212
  Receipt Date: 20200212
  Transmission Date: 20200409
  Serious: Yes (Other)
  Sender: FDA-Public Use
  Company Number: JP-MYLANLABS-2020M1015074

PATIENT
  Age: 67 Year
  Sex: Female

DRUGS (6)
  1. TACROLIMUS. [Concomitant]
     Active Substance: TACROLIMUS
     Indication: STILL^S DISEASE
     Route: 065
  2. METHOTREXATE. [Concomitant]
     Active Substance: METHOTREXATE
     Indication: ACQUIRED AMEGAKARYOCYTIC THROMBOCYTOPENIA
  3. TACROLIMUS. [Concomitant]
     Active Substance: TACROLIMUS
     Indication: ACQUIRED AMEGAKARYOCYTIC THROMBOCYTOPENIA
  4. PREDNISOLONE. [Suspect]
     Active Substance: PREDNISOLONE
     Indication: STILL^S DISEASE
     Route: 065
  5. PREDNISOLONE. [Suspect]
     Active Substance: PREDNISOLONE
     Indication: ACQUIRED AMEGAKARYOCYTIC THROMBOCYTOPENIA
  6. METHOTREXATE. [Concomitant]
     Active Substance: METHOTREXATE
     Indication: STILL^S DISEASE
     Route: 065

REACTIONS (1)
  - Treatment failure [Unknown]
